FAERS Safety Report 25109986 (Version 1)
Quarter: 2025Q1

REPORT INFORMATION
  Report Type: Spontaneous
  Country: FR (occurrence: FR)
  Receive Date: 20250324
  Receipt Date: 20250324
  Transmission Date: 20250409
  Serious: Yes (Hospitalization, Other)
  Sender: UNICHEM
  Company Number: FR-UNICHEM LABORATORIES LIMITED-UNI-2025-FR-001560

PATIENT

DRUGS (4)
  1. PREGABALIN [Suspect]
     Active Substance: PREGABALIN
     Indication: Schizophrenia
     Route: 065
  2. PREGABALIN [Suspect]
     Active Substance: PREGABALIN
     Route: 065
  3. PREGABALIN [Suspect]
     Active Substance: PREGABALIN
     Route: 065
  4. TRAMADOL [Suspect]
     Active Substance: TRAMADOL
     Indication: Schizophrenia
     Route: 065

REACTIONS (3)
  - Drug use disorder [Unknown]
  - Hallucination [Unknown]
  - Confusional state [Unknown]
